FAERS Safety Report 11020757 (Version 3)
Quarter: 2015Q2

REPORT INFORMATION
  Report Type: Report from Study
  Country: PT (occurrence: PT)
  Receive Date: 20150413
  Receipt Date: 20150515
  Transmission Date: 20150821
  Serious: Yes (Other)
  Sender: FDA-Public Use
  Company Number: PT-BIOGENIDEC-2015BI047653

PATIENT
  Age: 49 Year
  Sex: Female

DRUGS (2)
  1. AVONEX [Suspect]
     Active Substance: INTERFERON BETA-1A
     Indication: RELAPSING-REMITTING MULTIPLE SCLEROSIS
     Route: 030
     Dates: start: 20040715
  2. AVONEX [Suspect]
     Active Substance: INTERFERON BETA-1A
     Indication: RELAPSING-REMITTING MULTIPLE SCLEROSIS
     Route: 030
     Dates: start: 201212

REACTIONS (13)
  - Urinary hesitation [Unknown]
  - Post procedural constipation [Unknown]
  - Fluid retention [Unknown]
  - Malaise [Unknown]
  - Multiple sclerosis relapse [Unknown]
  - Procedural anxiety [Unknown]
  - Gastrointestinal disorder [Unknown]
  - Depression [Unknown]
  - Muscular weakness [Unknown]
  - Mobility decreased [Unknown]
  - Pain [Unknown]
  - Discomfort [Unknown]
  - Anxiety [Unknown]

NARRATIVE: CASE EVENT DATE: 20131007
